FAERS Safety Report 24111464 (Version 1)
Quarter: 2024Q3

REPORT INFORMATION
  Report Type: Spontaneous
  Country: GB (occurrence: GB)
  Receive Date: 20240718
  Receipt Date: 20240718
  Transmission Date: 20241016
  Serious: Yes (Other)
  Sender: REGENERON
  Company Number: GB-REGENERON PHARMACEUTICALS, INC.-2024-096750

PATIENT

DRUGS (1)
  1. LIBTAYO [Suspect]
     Active Substance: CEMIPLIMAB-RWLC
     Indication: Squamous cell carcinoma of skin

REACTIONS (1)
  - Anaphylactic reaction [Unknown]
